FAERS Safety Report 8318382-7 (Version None)
Quarter: 2012Q2

REPORT INFORMATION
  Report Type: 
  Country: None (occurrence: None)
  Receive Date: 20120427
  Receipt Date: 20120418
  Transmission Date: 20120825
  Serious: Yes (Hospitalization, Other)
  Sender: FDA-Public Use
  Company Number: US-ASTRAZENECA-2011SE08970

PATIENT
  Age: 68 Year
  Sex: Female

DRUGS (4)
  1. SEROQUEL [Suspect]
     Indication: INSOMNIA
     Route: 048
  2. SEROQUEL [Suspect]
     Route: 048
  3. SEROQUEL [Suspect]
     Indication: DEPRESSION
     Route: 048
  4. SEROQUEL [Suspect]
     Route: 048

REACTIONS (12)
  - MENTAL DISORDER [None]
  - ANXIETY [None]
  - SPINAL FRACTURE [None]
  - RIB FRACTURE [None]
  - PANIC ATTACK [None]
  - WEIGHT INCREASED [None]
  - JOINT INJURY [None]
  - UPPER LIMB FRACTURE [None]
  - FOOT FRACTURE [None]
  - FALL [None]
  - LIGAMENT SPRAIN [None]
  - BACK DISORDER [None]
